FAERS Safety Report 23617732 (Version 3)
Quarter: 2024Q2

REPORT INFORMATION
  Report Type: Spontaneous
  Country: US (occurrence: US)
  Receive Date: 20240311
  Receipt Date: 20240508
  Transmission Date: 20240716
  Serious: Yes (Hospitalization, Other)
  Sender: FDA-Public Use
  Company Number: US-SA-SAC20240309000001

PATIENT
  Age: 38 Year
  Sex: Male

DRUGS (7)
  1. ELOCTATE [Suspect]
     Active Substance: EFMOROCTOCOG ALFA
     Indication: Factor VIII deficiency
     Dosage: 6000 U, PRN
     Route: 042
     Dates: start: 202402
  2. ELOCTATE [Suspect]
     Active Substance: EFMOROCTOCOG ALFA
     Indication: Factor VIII deficiency
     Dosage: 6000 U, PRN
     Route: 042
     Dates: start: 202402
  3. ELOCTATE [Suspect]
     Active Substance: EFMOROCTOCOG ALFA
     Dosage: 3321  U (3155-3487), TIW PRIOR TO PHYSICAL THERAPY THROUGH 6 WEEKS POST-OP
     Route: 042
     Dates: start: 2024
  4. ELOCTATE [Suspect]
     Active Substance: EFMOROCTOCOG ALFA
     Dosage: 3321  U (3155-3487), TIW PRIOR TO PHYSICAL THERAPY THROUGH 6 WEEKS POST-OP
     Route: 042
     Dates: start: 2024
  5. ELOCTATE [Suspect]
     Active Substance: EFMOROCTOCOG ALFA
     Dosage: 3321 U (3155-3487), PRN EVERY 24 HOURS FOR BLEEDING
     Route: 042
     Dates: start: 2024
  6. ELOCTATE [Suspect]
     Active Substance: EFMOROCTOCOG ALFA
     Dosage: 3321 U (3155-3487), PRN EVERY 24 HOURS FOR BLEEDING
     Route: 042
     Dates: start: 2024
  7. HEMLIBRA [Concomitant]
     Active Substance: EMICIZUMAB-KXWH
     Dosage: FOR PROPHYLACTIC

REACTIONS (2)
  - Postoperative wound infection [Unknown]
  - Knee arthroplasty [Unknown]

NARRATIVE: CASE EVENT DATE: 20240101
